FAERS Safety Report 21701112 (Version 1)
Quarter: 2022Q4

REPORT INFORMATION
  Report Type: Report from Study
  Country: US (occurrence: US)
  Receive Date: 20221208
  Receipt Date: 20221208
  Transmission Date: 20230113
  Serious: Yes (Hospitalization)
  Sender: FDA-Public Use
  Company Number: US-ABBVIE-4228429

PATIENT
  Age: 45 Year
  Sex: Female

DRUGS (1)
  1. HUMIRA [Suspect]
     Active Substance: ADALIMUMAB
     Indication: Ankylosing spondylitis
     Dosage: THERAPY CESSATION DATE SHOULD BE: 2022/FORM STRENGTH: 40 MG/?EVENT ONSET DATE FOR SPOT ON STOMACH...
     Route: 058
     Dates: start: 20220805

REACTIONS (4)
  - Staphylococcal infection [Not Recovered/Not Resolved]
  - Pruritus [Unknown]
  - Scratch [Unknown]
  - Skin disorder [Unknown]

NARRATIVE: CASE EVENT DATE: 20221130
